FAERS Safety Report 8193953-X (Version None)
Quarter: 2012Q1

REPORT INFORMATION
  Report Type: 
  Country: None (occurrence: None)
  Receive Date: 20120308
  Receipt Date: 20120302
  Transmission Date: 20120608
  Serious: Yes (Hospitalization)
  Sender: FDA-Public Use
  Company Number: AU-B.I. PHARMACEUTICALS,INC./RIDGEFIELD-2012-AU-00447AU

PATIENT
  Age: 88 Year
  Sex: Female

DRUGS (7)
  1. EZETIMIBE [Concomitant]
  2. METOPROLOL TARTRATE [Concomitant]
  3. PRADAXA [Suspect]
  4. LASIX [Concomitant]
  5. PANADOL OSTEO [Concomitant]
  6. TRANSDERM-NITRO [Concomitant]
  7. SLOW-K [Concomitant]

REACTIONS (1)
  - EMBOLIC STROKE [None]
